FAERS Safety Report 25772060 (Version 1)
Quarter: 2025Q3

REPORT INFORMATION
  Report Type: Spontaneous
  Country: TW (occurrence: TW)
  Receive Date: 20250908
  Receipt Date: 20250908
  Transmission Date: 20251020
  Serious: Yes (Hospitalization)
  Sender: MERCK SHARP & DOHME LLC
  Company Number: TW-009507513-2324818

PATIENT
  Age: 73 Year
  Sex: Male

DRUGS (15)
  1. INVANZ [Suspect]
     Active Substance: ERTAPENEM SODIUM
     Indication: Bacterial infection
     Dosage: 500 MG ONCE EVERY 1.0 DAYS
     Route: 041
     Dates: start: 20250717, end: 20250726
  2. DIFLUCAN [Suspect]
     Active Substance: FLUCONAZOLE
     Indication: Fungal infection
     Dosage: 200 MG ONCE EVERY 1 DAYS
     Route: 041
     Dates: start: 20250723, end: 20250725
  3. TARGOCID [Suspect]
     Active Substance: TEICOPLANIN
     Indication: Bacterial infection
     Route: 041
     Dates: start: 20250726, end: 20250727
  4. ALLEGRA [Concomitant]
     Active Substance: FEXOFENADINE HYDROCHLORIDE
     Indication: Antiallergic therapy
     Route: 048
     Dates: start: 20250713, end: 20250725
  5. Dosin [Concomitant]
     Indication: Nausea
     Route: 048
     Dates: start: 20250713, end: 20250727
  6. Acetal [Concomitant]
     Indication: Analgesic therapy
     Dosage: 500 MG PER DAY
     Dates: start: 20250714, end: 20250725
  7. TRAMADOL [Concomitant]
     Active Substance: TRAMADOL
     Indication: Analgesic therapy
     Route: 042
     Dates: start: 20250714, end: 20250726
  8. LANSOPRAZOLE [Concomitant]
     Active Substance: LANSOPRAZOLE
     Indication: Prophylaxis against gastrointestinal ulcer
     Route: 048
     Dates: start: 20250717, end: 20250731
  9. TETRACYCLINE [Concomitant]
     Active Substance: TETRACYCLINE
     Indication: Bacterial infection
     Route: 003
  10. BISACODYL [Concomitant]
     Active Substance: BISACODYL
     Indication: Constipation
     Route: 054
     Dates: start: 20250723, end: 20250731
  11. COMBIVENT [Concomitant]
     Active Substance: ALBUTEROL SULFATE\IPRATROPIUM BROMIDE
     Indication: Bronchiectasis
     Route: 055
     Dates: start: 20250723, end: 20250725
  12. COMBIVENT [Concomitant]
     Active Substance: ALBUTEROL SULFATE\IPRATROPIUM BROMIDE
     Indication: Bronchiectasis
     Route: 055
     Dates: start: 20250725, end: 20250731
  13. Encore [Concomitant]
     Indication: Increased viscosity of upper respiratory secretion
     Route: 055
     Dates: start: 20250725, end: 20250731
  14. Promostan [Concomitant]
     Indication: Vasodilatation
     Dosage: ONCE EVERY DAY
     Route: 041
     Dates: start: 20250726, end: 20250728
  15. JANUVIA [Concomitant]
     Active Substance: SITAGLIPTIN PHOSPHATE
     Indication: Blood glucose increased
     Dosage: 0.25 TB (STRENGTH: 100 MG) ONCE 1.0 DAYS
     Route: 048
     Dates: start: 20250715, end: 20250727

REACTIONS (3)
  - Hyperthermia [Recovered/Resolved]
  - Bronchospasm [Recovered/Resolved]
  - Feeling cold [Recovered/Resolved]

NARRATIVE: CASE EVENT DATE: 20250727
